FAERS Safety Report 8924529 (Version 2)
Quarter: 2014Q2

REPORT INFORMATION
  Report Type: Spontaneous
  Country: AU (occurrence: AU)
  Receive Date: 20121126
  Receipt Date: 20131018
  Transmission Date: 20141212
  Serious: Yes (Death)
  Sender: FDA-Public Use
  Company Number: AU-PFIZER INC-2012268198

PATIENT
  Sex: Female

DRUGS (10)
  1. DEPO-MEDROL [Suspect]
     Indication: VASCULITIS
     Dosage: 100 MG, 1X/DAY
     Route: 042
  2. CALTRATE [Concomitant]
     Indication: BLOOD PHOSPHORUS
     Dosage: 600 MG, 3X/DAY
     Route: 048
     Dates: start: 20121010
  3. ACETYLSALICYLIC ACID [Concomitant]
     Indication: ANTIPLATELET THERAPY
     Dosage: 100 MG, 1X/DAY
     Route: 048
  4. OSTELIN [Concomitant]
     Indication: VITAMIN SUPPLEMENTATION
     Dosage: 1000 IU, 1X/DAY
     Route: 048
     Dates: start: 20121010
  5. HEPARIN [Concomitant]
     Indication: THROMBOSIS PROPHYLAXIS
     Dosage: 5000 IU, 2X/DAY
     Route: 058
     Dates: start: 20121010, end: 20121102
  6. FRUSEMIDE [Concomitant]
     Indication: POLYURIA
     Dosage: 80 MG, 2X/DAY
     Route: 048
     Dates: start: 20121021, end: 20121027
  7. NEXIUM [Concomitant]
     Indication: PROPHYLAXIS AGAINST GASTROINTESTINAL ULCER
     Dosage: 40 MG, 1X/DAY
     Route: 048
     Dates: start: 20121025, end: 20121102
  8. NILSTAT [Concomitant]
     Indication: ORAL CANDIDIASIS
     Dosage: 1 ML, 4X/DAY
     Route: 048
     Dates: start: 20121025, end: 20121102
  9. BACTRIM DS [Concomitant]
     Indication: ANTIFUNGAL PROPHYLAXIS
     Dosage: 160/800MG, HALF A TABLET  (80/400MG) TWICE A WEEK
     Route: 048
     Dates: start: 20121026, end: 20121101
  10. PANAMAX [Concomitant]
     Indication: ANALGESIC THERAPY
     Dosage: 1 G, 4X/DAY
     Route: 048
     Dates: start: 20121019

REACTIONS (4)
  - Pulmonary oedema [Fatal]
  - Acute myocardial infarction [Fatal]
  - Atrial fibrillation [Fatal]
  - Incorrect route of drug administration [Unknown]
